FAERS Safety Report 10641484 (Version 1)
Quarter: 2014Q4

REPORT INFORMATION
  Report Type: Spontaneous
  Country: US (occurrence: None)
  Receive Date: 20141208
  Receipt Date: 20141208
  Transmission Date: 20150529
  Serious: Yes (Other)
  Sender: FDA-Public Use
  Company Number: None

PATIENT
  Age: 71 Year
  Sex: Female
  Weight: 68.04 kg

DRUGS (4)
  1. MELATONIN [Concomitant]
     Active Substance: MELATONIN
  2. AMBIEN [Suspect]
     Active Substance: ZOLPIDEM TARTRATE
     Indication: MIDDLE EAR EFFUSION
     Dosage: ORAL - 47
     Route: 048
     Dates: start: 20131223, end: 20140423
  3. AMBIEN [Suspect]
     Active Substance: ZOLPIDEM TARTRATE
     Indication: POST PROCEDURAL COMPLICATION
     Dosage: ORAL - 47
     Route: 048
     Dates: start: 20131223, end: 20140423
  4. AMBIEN [Suspect]
     Active Substance: ZOLPIDEM TARTRATE
     Indication: INSOMNIA
     Dosage: ORAL - 47
     Route: 048
     Dates: start: 20131223, end: 20140423

REACTIONS (8)
  - Disturbance in attention [None]
  - Abdominal distension [None]
  - Amnesia [None]
  - Social avoidant behaviour [None]
  - Cyst [None]
  - Negative thoughts [None]
  - Feeling abnormal [None]
  - Social problem [None]

NARRATIVE: CASE EVENT DATE: 20131223
